FAERS Safety Report 25841038 (Version 2)
Quarter: 2025Q4

REPORT INFORMATION
  Report Type: Report from Study
  Country: US (occurrence: US)
  Receive Date: 20250924
  Receipt Date: 20251223
  Transmission Date: 20260118
  Serious: No
  Sender: ACADIA PHARMACEUTICALS
  Company Number: US-ACADIA PHARMACEUTICALS INC.-ACA-2025-TRF-010546

PATIENT
  Sex: Female

DRUGS (1)
  1. DAYBUE [Suspect]
     Active Substance: TROFINETIDE
     Indication: Rett syndrome
     Dosage: 60 MILLILITER, BID
     Route: 048

REACTIONS (6)
  - Expulsion of medication [Not Recovered/Not Resolved]
  - Mood swings [Unknown]
  - Malaise [Unknown]
  - Emotional distress [Unknown]
  - Nasopharyngitis [Unknown]
  - Product use complaint [Not Recovered/Not Resolved]
